FAERS Safety Report 9127523 (Version 1)
Quarter: 2013Q1

REPORT INFORMATION
  Report Type: Spontaneous
  Country: US (occurrence: US)
  Receive Date: 20130228
  Receipt Date: 20130228
  Transmission Date: 20140127
  Serious: No
  Sender: FDA-Public Use
  Company Number: US-GLAXOSMITHKLINE-A0982023A

PATIENT
  Age: 70 Year
  Sex: Male

DRUGS (5)
  1. LAMICTAL [Suspect]
     Indication: CONVULSION
     Dosage: 300MG PER DAY
     Route: 048
     Dates: start: 201201
  2. ZONISAMIDE [Concomitant]
  3. DOXAZOSIN [Concomitant]
  4. SIMVASTATIN [Concomitant]
  5. RANITIDINE [Concomitant]

REACTIONS (3)
  - Vision blurred [Not Recovered/Not Resolved]
  - Hypersomnia [Unknown]
  - Memory impairment [Unknown]
